FAERS Safety Report 19323623 (Version 3)
Quarter: 2021Q2

REPORT INFORMATION
  Report Type: Spontaneous
  Country: GB (occurrence: GB)
  Receive Date: 20210528
  Receipt Date: 20210625
  Transmission Date: 20210717
  Serious: Yes (Hospitalization, Other)
  Sender: FDA-Public Use
  Company Number: GB-NOVOPROD-815034

PATIENT
  Age: 5 Year
  Sex: Male
  Weight: 24.1 kg

DRUGS (1)
  1. NOVORAPID [Suspect]
     Active Substance: INSULIN ASPART
     Indication: TYPE 1 DIABETES MELLITUS
     Dosage: 2.5U/KG/DAY
     Route: 058
     Dates: start: 20210427, end: 20210513

REACTIONS (4)
  - Ketosis [Recovering/Resolving]
  - Hyperglycaemia [Recovering/Resolving]
  - Insulin resistance [Unknown]
  - Drug ineffective [Unknown]
